FAERS Safety Report 26057829 (Version 1)
Quarter: 2025Q4

REPORT INFORMATION
  Report Type: Spontaneous
  Country: US (occurrence: US)
  Receive Date: 20251118
  Receipt Date: 20251118
  Transmission Date: 20260118
  Serious: No
  Sender: ALVOGEN
  Company Number: US-ALVOGEN-2025098562

PATIENT
  Age: 80 Year
  Sex: Female

DRUGS (3)
  1. TERIPARATIDE [Suspect]
     Active Substance: TERIPARATIDE
     Indication: Product used for unknown indication
     Dosage: EXPIRATION DATE: AUG-2026
     Route: 058
     Dates: start: 2025
  2. TERIPARATIDE [Suspect]
     Active Substance: TERIPARATIDE
     Indication: Product used for unknown indication
     Dosage: EXPIRATION DATE: DEC-2026
     Route: 058
     Dates: start: 2025
  3. TERIPARATIDE [Concomitant]
     Active Substance: TERIPARATIDE
     Indication: Product used for unknown indication
     Dosage: 2ND PEN
     Dates: start: 2025

REACTIONS (4)
  - Device malfunction [Unknown]
  - Device operational issue [Unknown]
  - Device defective [Unknown]
  - Product dose omission issue [Unknown]

NARRATIVE: CASE EVENT DATE: 20250801
